FAERS Safety Report 9200680 (Version 1)
Quarter: 2013Q1

REPORT INFORMATION
  Report Type: Spontaneous
  Country: GB (occurrence: GB)
  Receive Date: 20130331
  Receipt Date: 20130331
  Transmission Date: 20140127
  Serious: Yes (Other)
  Sender: FDA-Public Use
  Company Number: GB-TEVA-393974ISR

PATIENT
  Age: 50 Year
  Sex: Female
  Weight: 106 kg

DRUGS (5)
  1. SERTRALINE [Suspect]
     Indication: DEPRESSION
     Route: 048
  2. OLANZAPINE [Concomitant]
  3. SIMVASTATIN [Concomitant]
  4. SODIUM VALPROATE [Concomitant]
  5. PROCYCLIDINE [Concomitant]

REACTIONS (2)
  - Rectal haemorrhage [Recovering/Resolving]
  - Colitis ulcerative [Unknown]
